FAERS Safety Report 4579532-1 (Version None)
Quarter: 2005Q1

REPORT INFORMATION
  Report Type: 
  Country: None (occurrence: None)
  Receive Date: 20050214
  Receipt Date: 20041201
  Transmission Date: 20050727
  Serious: Yes (Hospitalization)
  Sender: FDA-Public Use
  Company Number: DK-SOLVAY-00305000366

PATIENT
  Age: 19597 Day
  Sex: Male
  Weight: 69.1 kg

DRUGS (3)
  1. B 12 [Concomitant]
     Indication: VITILIGO
     Route: 030
     Dates: start: 20010101
  2. CREON [Suspect]
     Indication: ILL-DEFINED DISORDER
     Dosage: DAILY DOSE: 4 DOSAGE FORM
     Route: 048
     Dates: start: 20041127, end: 20041127
  3. PAMOL [Concomitant]
     Indication: PAIN
     Dosage: DAILY DOSE: 4 GRAM(S)
     Route: 048
     Dates: start: 20041118

REACTIONS (1)
  - ILL-DEFINED DISORDER [None]
